FAERS Safety Report 5091457-4 (Version None)
Quarter: 2006Q3

REPORT INFORMATION
  Report Type: 
  Country: None (occurrence: None)
  Receive Date: 20060824
  Receipt Date: 20060816
  Transmission Date: 20061208
  Serious: Yes (Other)
  Sender: FDA-Public Use
  Company Number: 2006AL002304

PATIENT
  Age: 21 Month
  Sex: Female

DRUGS (1)
  1. FEVERALL [Suspect]
     Indication: PYREXIA
     Dosage: RTL
     Route: 054
     Dates: start: 20060813, end: 20060813

REACTIONS (4)
  - BLISTER [None]
  - ERYTHEMA [None]
  - NAUSEA [None]
  - URTICARIA [None]
